FAERS Safety Report 6277896-4 (Version None)
Quarter: 2009Q3

REPORT INFORMATION
  Report Type: 
  Country: None (occurrence: None)
  Receive Date: 20090722
  Receipt Date: 20090715
  Transmission Date: 20100115
  Serious: Yes (Other)
  Sender: FDA-Public Use
  Company Number: GB-MERCK-0907GBR00056

PATIENT
  Age: 7 Year
  Sex: Male

DRUGS (1)
  1. SINGULAIR [Suspect]
     Route: 065

REACTIONS (3)
  - DYSPHAGIA [None]
  - MOOD SWINGS [None]
  - SUICIDAL IDEATION [None]
